FAERS Safety Report 5515621-2 (Version None)
Quarter: 2007Q4

REPORT INFORMATION
  Report Type: 
  Country: None (occurrence: None)
  Receive Date: 20071113
  Receipt Date: 20070709
  Transmission Date: 20080405
  Serious: No
  Sender: FDA-Public Use
  Company Number: A0662519A

PATIENT
  Age: 85 Year
  Sex: Male

DRUGS (5)
  1. COREG [Suspect]
     Indication: DRUG USE FOR UNKNOWN INDICATION
     Dosage: 25MG TWICE PER DAY
     Route: 048
     Dates: end: 20070101
  2. CLONIDINE [Concomitant]
  3. AVAPRO [Concomitant]
  4. FUROSEMIDE [Concomitant]
  5. LUPRON [Concomitant]

REACTIONS (2)
  - OEDEMA PERIPHERAL [None]
  - PAIN [None]
